FAERS Safety Report 23793642 (Version 2)
Quarter: 2024Q2

REPORT INFORMATION
  Report Type: Spontaneous
  Country: JP (occurrence: JP)
  Receive Date: 20240429
  Receipt Date: 20240521
  Transmission Date: 20240716
  Serious: Yes (Other)
  Sender: FDA-Public Use
  Company Number: JP-Vifor (International) Inc.-VIT-2024-03637

PATIENT
  Age: 10 Year
  Sex: Male
  Weight: 34 kg

DRUGS (12)
  1. TAVNEOS [Suspect]
     Active Substance: AVACOPAN
     Indication: Anti-neutrophil cytoplasmic antibody positive vasculitis
     Dosage: 30 MILLIGRAM, Q12H
     Route: 048
     Dates: start: 20231231, end: 20240130
  2. TAVNEOS [Suspect]
     Active Substance: AVACOPAN
     Indication: Granulomatosis with polyangiitis
  3. RITUXAN [Suspect]
     Active Substance: RITUXIMAB
     Indication: Granulomatosis with polyangiitis
     Dosage: 400 MILLIGRAM, QD
     Route: 040
     Dates: start: 20240110, end: 20240110
  4. RITUXAN [Suspect]
     Active Substance: RITUXIMAB
     Indication: Anti-neutrophil cytoplasmic antibody positive vasculitis
     Dosage: 400 MILLIGRAM, QD
     Route: 040
     Dates: start: 20240117, end: 20240117
  5. RITUXAN [Suspect]
     Active Substance: RITUXIMAB
     Dosage: 400 MILLIGRAM, QD
     Route: 040
     Dates: start: 20240124, end: 20240130
  6. PREDNISOLONE [Concomitant]
     Active Substance: PREDNISOLONE
     Dosage: PERORAL MEDICINE
     Route: 048
  7. METHYLPREDNISOLONE [Concomitant]
     Active Substance: METHYLPREDNISOLONE
     Indication: Granulomatosis with polyangiitis
     Dosage: THREE COURSES OF METHYLPREDNISOLONE PULSE THERAPY
  8. METHYLPREDNISOLONE [Concomitant]
     Active Substance: METHYLPREDNISOLONE
     Dosage: THREE COURSES OF METHYLPREDNISOLONE PULSE THERAPY
  9. ALFACALCIDOL [Concomitant]
     Active Substance: ALFACALCIDOL
     Dosage: PERORAL MEDICINE
     Route: 048
     Dates: start: 20231128
  10. TEPRENONE [Concomitant]
     Active Substance: TEPRENONE
     Dosage: 50 MILLIGRAM, QD
     Route: 048
     Dates: start: 20231128
  11. PREDONINE [Concomitant]
     Active Substance: PREDNISOLONE
     Dosage: PERORAL MEDICINE
     Route: 048
     Dates: start: 20231128
  12. SULFAMETHOXAZOLE\TRIMETHOPRIM [Concomitant]
     Active Substance: SULFAMETHOXAZOLE\TRIMETHOPRIM
     Dosage: 1 DOSAGE FORM, Q12H
     Route: 048
     Dates: start: 20240111

REACTIONS (3)
  - Suspected drug-induced liver injury [Recovered/Resolved]
  - Hepatic function abnormal [Recovering/Resolving]
  - Off label use [Unknown]

NARRATIVE: CASE EVENT DATE: 20231231
